FAERS Safety Report 13088277 (Version 1)
Quarter: 2017Q1

REPORT INFORMATION
  Report Type: Spontaneous
  Country: US (occurrence: US)
  Receive Date: 20170104
  Receipt Date: 20170104
  Transmission Date: 20170428
  Serious: Yes (Other)
  Sender: FDA-Public Use
  Company Number: None

PATIENT
  Age: 53 Year
  Sex: Male
  Weight: 49.05 kg

DRUGS (1)
  1. DOCUSATE [Suspect]
     Active Substance: DOCUSATE
     Indication: CERUMEN REMOVAL
     Route: 001
     Dates: start: 20160715, end: 20160715

REACTIONS (2)
  - Otorrhoea [None]
  - Product quality issue [None]

NARRATIVE: CASE EVENT DATE: 20160715
